FAERS Safety Report 9343676 (Version 1)
Quarter: 2013Q2

REPORT INFORMATION
  Report Type: Spontaneous
  Country: US (occurrence: US)
  Receive Date: 20130612
  Receipt Date: 20130612
  Transmission Date: 20140414
  Serious: Yes (Life-Threatening, Hospitalization, Disabling, Other)
  Sender: FDA-Public Use
  Company Number: US-009507513-1110USA03358

PATIENT
  Age: 57 Year
  Sex: Female
  Weight: 73.3 kg

DRUGS (11)
  1. FOSAMAX [Suspect]
     Indication: OSTEOPOROSIS
     Dosage: 70 MG, QW
     Route: 048
     Dates: end: 20110222
  2. AMLODIPINE [Concomitant]
     Dosage: 5 MG, QD
     Route: 048
  3. ASPIRIN [Concomitant]
     Dosage: 81 MG, QD
     Route: 048
  4. CELEBREX [Concomitant]
     Dosage: 200 MG, QD
     Route: 048
  5. BLACK COHOSH [Concomitant]
     Route: 048
  6. DOXYCYCLINE [Concomitant]
     Indication: ABSCESS
     Dosage: 100 MG, Q12H
     Dates: start: 20110218
  7. EVENING PRIMROSE OIL [Concomitant]
     Route: 048
  8. GABAPENTIN [Concomitant]
     Dosage: 600 MG, HS
     Route: 048
  9. ACETAMINOPHEN (+) HYDROCODONE BITARTRATE [Concomitant]
     Indication: PAIN
     Dosage: 325/5
     Route: 048
  10. HYDROCHLOROTHIAZIDE (+) LOSARTAN POTASSIUM [Concomitant]
     Dosage: 25/100
     Route: 048
  11. SERTRALINE HYDROCHLORIDE [Concomitant]
     Dosage: 200 MG, QD
     Route: 048

REACTIONS (8)
  - Obstructive airways disorder [Recovered/Resolved]
  - Pneumonia aspiration [Recovered/Resolved]
  - Cough [Recovered/Resolved]
  - Skin lesion [Unknown]
  - Blood potassium decreased [Unknown]
  - Tracheobronchitis [Recovered/Resolved]
  - Rash [Unknown]
  - Blood calcium decreased [Unknown]
